FAERS Safety Report 18108649 (Version 2)
Quarter: 2020Q4

REPORT INFORMATION
  Report Type: Spontaneous
  Country: US (occurrence: US)
  Receive Date: 20200804
  Receipt Date: 20201216
  Transmission Date: 20210113
  Serious: Yes (Hospitalization, Other)
  Sender: FDA-Public Use
  Company Number: US-PFIZER INC-2020289708

PATIENT
  Age: 13 Year
  Sex: Male
  Weight: 71.67 kg

DRUGS (5)
  1. GENOTROPIN [Suspect]
     Active Substance: SOMATROPIN
     Dosage: 4.4 MG (ROTATING SITES)
     Route: 058
  2. LEVETIRACETAM. [Concomitant]
     Active Substance: LEVETIRACETAM
     Indication: SEIZURE
     Dosage: 500 MG, 2X/DAY
  3. TOPIRAMATE. [Concomitant]
     Active Substance: TOPIRAMATE
     Indication: SEIZURE
     Dosage: UNK, 2X/DAY  (2-50MG)
  4. TOPIRAMATE. [Concomitant]
     Active Substance: TOPIRAMATE
     Indication: MIGRAINE
  5. GENOTROPIN [Suspect]
     Active Substance: SOMATROPIN
     Indication: GROWTH DISORDER
     Dosage: STARTED UNKNOWN DOSE, MAYBE 0.6MG, THEN 0.9, THEN 1.0, THEN 1.2 AND UP THROUGH OUT ALL THESE YEARS
     Route: 058
     Dates: start: 2017

REACTIONS (7)
  - Product use in unapproved indication [Unknown]
  - Expired device used [Unknown]
  - Incorrect dose administered by device [Unknown]
  - Seizure [Unknown]
  - Off label use [Unknown]
  - Drug effective for unapproved indication [Unknown]
  - Fall [Recovered/Resolved with Sequelae]

NARRATIVE: CASE EVENT DATE: 2017
